FAERS Safety Report 8429224-3 (Version None)
Quarter: 2012Q2

REPORT INFORMATION
  Report Type: 
  Country: None (occurrence: None)
  Receive Date: 20120612
  Receipt Date: 20120606
  Transmission Date: 20120825
  Serious: Yes (Disabling, Other)
  Sender: FDA-Public Use
  Company Number: PHHY2011CA62918

PATIENT
  Sex: Female

DRUGS (5)
  1. CORTISONE ACETATE [Concomitant]
  2. ZOLEDRONOC ACID [Suspect]
     Dosage: 5 MG,
     Route: 042
     Dates: start: 20110712
  3. ZOLEDRONOC ACID [Suspect]
     Dosage: 5 MG,
     Route: 042
     Dates: start: 20100629
  4. ZOLEDRONOC ACID [Suspect]
     Indication: OSTEOPOROSIS
     Dosage: 5 MG,
     Route: 042
     Dates: start: 20090612
  5. METHOTREXATE [Concomitant]

REACTIONS (4)
  - DEVICE DIFFICULT TO USE [None]
  - BLADDER PROLAPSE [None]
  - INFECTION [None]
  - DYSSTASIA [None]
